FAERS Safety Report 20905256 (Version 8)
Quarter: 2023Q1

REPORT INFORMATION
  Report Type: Report from Study
  Country: US (occurrence: US)
  Receive Date: 20220602
  Receipt Date: 20230104
  Transmission Date: 20230418
  Serious: No
  Sender: FDA-Public Use
  Company Number: US-GLAXOSMITHKLINE-US2022AMR077261

PATIENT

DRUGS (1)
  1. BELANTAMAB MAFODOTIN [Suspect]
     Active Substance: BELANTAMAB MAFODOTIN
     Indication: Plasma cell myeloma
     Dosage: 2.5 MG, Z, EVERY THREE WEEKS
     Dates: start: 20220411

REACTIONS (6)
  - Visual acuity reduced [Unknown]
  - Keratopathy [Unknown]
  - Diplopia [Unknown]
  - Corneal disorder [Unknown]
  - Night blindness [Unknown]
  - COVID-19 [Unknown]

NARRATIVE: CASE EVENT DATE: 20220511
